FAERS Safety Report 13004989 (Version 9)
Quarter: 2019Q2

REPORT INFORMATION
  Report Type: Spontaneous
  Country: US (occurrence: US)
  Receive Date: 20161207
  Receipt Date: 20190515
  Transmission Date: 20190711
  Serious: No
  Sender: FDA-Public Use
  Company Number: US-PFIZER INC-2016559751

PATIENT
  Age: 50 Year
  Sex: Female
  Weight: 87.53 kg

DRUGS (35)
  1. PHENERGAN [Concomitant]
     Active Substance: PROMETHAZINE HYDROCHLORIDE
     Dosage: 25 MG, AS NEEDED (EVERY 6 HOURS AS NEEDED )
     Route: 048
     Dates: start: 20190210
  2. LAMICTAL [Concomitant]
     Active Substance: LAMOTRIGINE
     Dosage: 200 MG, 2X/DAY (AFTER MEALS)
     Route: 048
     Dates: start: 20180719
  3. TOPAMAX [Concomitant]
     Active Substance: TOPIRAMATE
     Dosage: 50 MG, 2X/DAY
     Route: 048
     Dates: start: 20190201
  4. BENADRYL [Concomitant]
     Active Substance: DIPHENHYDRAMINE HYDROCHLORIDE
     Dosage: 50 MG, AS NEEDED (EVERY 6 HOURS)
     Route: 048
  5. FIORICET [Concomitant]
     Active Substance: ACETAMINOPHEN\BUTALBITAL\CAFFEINE
     Indication: HEADACHE
     Dosage: 1 DF, AS NEEDED
     Route: 048
     Dates: start: 20181213
  6. LYRICA [Suspect]
     Active Substance: PREGABALIN
     Indication: PAIN
     Dosage: 150 MG, 3X/DAY
     Route: 048
  7. LYRICA [Suspect]
     Active Substance: PREGABALIN
     Dosage: 1 DF, 1X/DAY (TAKING THE PILLS ONCE A DAY)
  8. BUTALBITAL-ACETAMINOPHEN-CAFFEINE [Concomitant]
     Indication: MIGRAINE
     Dosage: UNK, AS NEEDED
     Route: 048
  9. NAPROSYN [Concomitant]
     Active Substance: NAPROXEN
     Dosage: 500 MG, 2X/DAY (WITH MEALS)
     Route: 048
     Dates: start: 20190305
  10. LYRICA [Suspect]
     Active Substance: PREGABALIN
     Dosage: UNK, 2X/DAY (TAKING 1 CAPSULE BY MOUTH TWICE A DAY)
     Route: 048
  11. LYRICA [Suspect]
     Active Substance: PREGABALIN
     Dosage: 150 MG, 3X/DAY
     Route: 048
     Dates: start: 20190308
  12. BUTALBITAL-ACETAMINOPHEN-CAFFEINE [Concomitant]
     Indication: HEADACHE
  13. OXYCONTIN [Concomitant]
     Active Substance: OXYCODONE HYDROCHLORIDE
     Indication: BACK PAIN
     Dosage: 40 MG, 2X/DAY
  14. OXYCONTIN [Concomitant]
     Active Substance: OXYCODONE HYDROCHLORIDE
     Indication: NECK PAIN
     Dosage: 10 MG, 3X/DAY
  15. LYRICA [Suspect]
     Active Substance: PREGABALIN
     Indication: NEUROPATHY PERIPHERAL
     Dosage: 100 MG, 3X/DAY
     Route: 048
  16. LYRICA [Suspect]
     Active Substance: PREGABALIN
     Dosage: UNK, ALTERNATE DAY
  17. LYRICA [Suspect]
     Active Substance: PREGABALIN
     Dosage: 150 MG, 3X/DAY
     Route: 048
     Dates: start: 201506
  18. PYRIDIUM [Concomitant]
     Active Substance: PHENAZOPYRIDINE
     Indication: URINARY TRACT DISORDER
     Dosage: 200 MG, 3X/DAY (WITH MEALS)
     Route: 048
     Dates: start: 20190214
  19. BENTYL [Concomitant]
     Active Substance: DICYCLOMINE HYDROCHLORIDE
     Dosage: 10 MG, 4X/DAY(BEFORE MEALS AND AT BEDTIME)
     Route: 048
     Dates: start: 20180813
  20. SOMA [Concomitant]
     Active Substance: CARISOPRODOL
     Indication: MUSCLE SPASMS
     Dosage: 350 MG, AS NEEDED (THREE TIMES A DAY)
     Route: 048
     Dates: start: 20190116
  21. LYRICA [Suspect]
     Active Substance: PREGABALIN
     Indication: NERVE INJURY
     Dosage: 100 MG, 2X/DAY (COUPLE OF DAYS I TOOK TWO LIKE ONE IN THE MORNING AND ONE AT NIGHT)
     Route: 048
  22. LOMOTIL [ATROPINE SULFATE;DIPHENOXYLATE HYDROCHLORIDE] [Concomitant]
     Dosage: UNK, AS NEEDED
     Route: 048
     Dates: start: 20190319
  23. CLARITIN [Concomitant]
     Active Substance: LORATADINE
     Dosage: 10 MG, DAILY
     Route: 048
     Dates: start: 20170724
  24. LYRICA [Suspect]
     Active Substance: PREGABALIN
     Indication: FIBROMYALGIA
     Dosage: 100 MG, UNK (YESTERDAY I TOOK ONE)
     Route: 048
  25. LYRICA [Suspect]
     Active Substance: PREGABALIN
     Dosage: 150 MG, 3X/DAY
     Route: 048
  26. PHENERGAN [Concomitant]
     Active Substance: PROMETHAZINE HYDROCHLORIDE
     Indication: NAUSEA
     Dosage: 25 MG, AS NEEDED
     Route: 048
     Dates: start: 1993, end: 1994
  27. MIRALAX [Concomitant]
     Active Substance: POLYETHYLENE GLYCOL 3350
     Indication: CONSTIPATION
     Dosage: 17 G, 2X/DAY
     Route: 048
     Dates: start: 20170109
  28. TESSALON [Concomitant]
     Active Substance: BENZONATATE
     Indication: SINUSITIS
     Dosage: UNK
  29. TOPIRAMATE. [Concomitant]
     Active Substance: TOPIRAMATE
     Dosage: UNK
  30. TESSALON [Concomitant]
     Active Substance: BENZONATATE
     Indication: COUGH
     Dosage: 200 MG, AS NEEDED (EVERY 8 HOURS)
     Route: 048
     Dates: start: 20190428
  31. DILAUDID [Concomitant]
     Active Substance: HYDROMORPHONE HYDROCHLORIDE
     Indication: PAIN MANAGEMENT
     Dosage: 40 MG, DAILY (8 MG BY MOUTH 5 TIMES DAILY )
     Route: 048
     Dates: start: 20190416
  32. BACTRIM DS [Concomitant]
     Active Substance: SULFAMETHOXAZOLE\TRIMETHOPRIM
     Dosage: 1 DF, 2X/DAY
     Route: 048
     Dates: start: 20190128
  33. TOPAMAX [Concomitant]
     Active Substance: TOPIRAMATE
     Dosage: 100 MG, 2X/DAY
     Route: 048
  34. CARISOPRODOL. [Concomitant]
     Active Substance: CARISOPRODOL
     Indication: MUSCLE SPASMS
     Dosage: 350 MG, AS NEEDED (ONE THREE TIMES A DAY)
  35. ESGIC [Concomitant]
     Active Substance: ACETAMINOPHEN\BUTALBITAL\CAFFEINE
     Dosage: 1 DF, AS NEEDED
     Route: 048
     Dates: start: 20181213

REACTIONS (6)
  - Insomnia [Not Recovered/Not Resolved]
  - Intentional product misuse [Unknown]
  - Product dose omission [Unknown]
  - Malaise [Unknown]
  - Nasopharyngitis [Unknown]
  - Mood altered [Unknown]

NARRATIVE: CASE EVENT DATE: 201902
